FAERS Safety Report 9887671 (Version 1)
Quarter: 2013Q4

REPORT INFORMATION
  Report Type: Spontaneous
  Country: US (occurrence: None)
  Receive Date: 20131223
  Receipt Date: 20131223
  Transmission Date: 20140711
  Serious: No
  Sender: FDA-Public Use
  Company Number: 219992LEO

PATIENT
  Age: 63 Year
  Sex: Male

DRUGS (4)
  1. PICATO (0.015%) [Suspect]
     Indication: ACTINIC KERATOSIS
     Dates: start: 20121227, end: 20121229
  2. INSULIN (INSULIN) [Concomitant]
  3. PAIN KILLER (ANALGESICS) [Concomitant]
  4. GABAPENTIN (GABAPENTIN) [Concomitant]

REACTIONS (3)
  - Dizziness [None]
  - Nausea [None]
  - Drug administered at inappropriate site [None]
